FAERS Safety Report 21765570 (Version 1)
Quarter: 2022Q4

REPORT INFORMATION
  Report Type: Report from Study
  Country: BR (occurrence: BR)
  Receive Date: 20221222
  Receipt Date: 20221222
  Transmission Date: 20230113
  Serious: Yes (Other)
  Sender: FDA-Public Use
  Company Number: BR-JNJFOC-20221231254

PATIENT
  Age: 41 Year
  Sex: Female

DRUGS (4)
  1. SIMPONI [Suspect]
     Active Substance: GOLIMUMAB
     Indication: Rheumatoid arthritis
     Route: 058
     Dates: start: 201709
  2. SIMPONI [Suspect]
     Active Substance: GOLIMUMAB
     Route: 058
     Dates: start: 20200924
  3. METHOTREXATE [Concomitant]
     Active Substance: METHOTREXATE
     Dosage: 10 METHOTREXATE PILLS EVERY MONDAY
     Route: 065
  4. FOLIC ACID [Concomitant]
     Active Substance: FOLIC ACID
     Dosage: ONE PILL EVERY TUESDAY
     Route: 065

REACTIONS (5)
  - Arrhythmia [Unknown]
  - Breast reconstruction [Unknown]
  - Swelling [Unknown]
  - Joint swelling [Unknown]
  - Spinal disorder [Unknown]

NARRATIVE: CASE EVENT DATE: 20220929
